FAERS Safety Report 19164686 (Version 1)
Quarter: 2021Q2

REPORT INFORMATION
  Report Type: Spontaneous
  Country: US (occurrence: US)
  Receive Date: 20210421
  Receipt Date: 20210421
  Transmission Date: 20210717
  Serious: Yes (Other)
  Sender: FDA-Public Use
  Company Number: NVSC2021US085084

PATIENT
  Sex: Female

DRUGS (5)
  1. PACLITAXEL ALBUMIN [Suspect]
     Active Substance: PACLITAXEL
     Indication: TRIPLE NEGATIVE BREAST CANCER
     Dosage: 3 CYCLES?ON DAYS 1, 8 AND 15 OF A 21?DAY CYCLE
     Route: 042
  2. PEMBROLIZUMAB. [Suspect]
     Active Substance: PEMBROLIZUMAB
     Indication: TRIPLE NEGATIVE BREAST CANCER
     Dosage: 3 CYCLES ? 200 MG IV ON DAY 15 OF EACH CYCLE
     Route: 042
  3. CARBOPLATIN. [Suspect]
     Active Substance: CARBOPLATIN
     Indication: TRIPLE NEGATIVE BREAST CANCER
     Dosage: 3 CYCLES ? AUC 6 ON DAYS 1 OF A 21?DAY CYCLE
     Route: 065
  4. CARBOPLATIN. [Suspect]
     Active Substance: CARBOPLATIN
     Dosage: DOSE REDUCED TO 4.2 AUC DUE TO BONE MARROW TOXICITYUNK
     Route: 065
  5. PACLITAXEL ALBUMIN [Suspect]
     Active Substance: PACLITAXEL
     Dosage: DOSE REDUCED TO 75 MG/M2 DUE TO BONE MARROW TOXICITY
     Route: 042

REACTIONS (2)
  - Product use in unapproved indication [Unknown]
  - Hepatitis [Unknown]
